FAERS Safety Report 4321991-3 (Version None)
Quarter: 2004Q1

REPORT INFORMATION
  Report Type: 
  Country: None (occurrence: None)
  Receive Date: 20040319
  Receipt Date: 20040210
  Transmission Date: 20041129
  Serious: No
  Sender: FDA-Public Use
  Company Number: 200400974

PATIENT
  Sex: Female

DRUGS (1)
  1. LUMIGAN [Suspect]
     Indication: GLAUCOMA
     Dosage: 1 DROP QPM EYE
     Route: 047
     Dates: start: 20031203, end: 20040209

REACTIONS (4)
  - ACCIDENTAL OVERDOSE [None]
  - EYE IRRITATION [None]
  - EYE PAIN [None]
  - EYE PRURITUS [None]
